FAERS Safety Report 13646155 (Version 1)
Quarter: 2017Q2

REPORT INFORMATION
  Report Type: Report from Study
  Country: JP (occurrence: JP)
  Receive Date: 20170613
  Receipt Date: 20170613
  Transmission Date: 20170830
  Serious: Yes (Hospitalization)
  Sender: FDA-Public Use
  Company Number: JP-ROCHE-1944114

PATIENT
  Age: 71 Year
  Sex: Female
  Weight: 48.8 kg

DRUGS (5)
  1. CYCLOPHOSPHAMIDE. [Suspect]
     Active Substance: CYCLOPHOSPHAMIDE
     Indication: DIFFUSE LARGE B-CELL LYMPHOMA
     Dosage: DOSE OF LAST CYCLOPHOSPHAMIDE TAKEN: 988 MG?DATE OF MOST RECENT DOSE OF CYCLOPHOSPHAMIDE PRIOR TO SA
     Route: 042
     Dates: start: 20131219
  2. OBINUTUZUMAB [Suspect]
     Active Substance: OBINUTUZUMAB
     Indication: DIFFUSE LARGE B-CELL LYMPHOMA
     Dosage: VOLUME OF LAST OBINUTUZUMAB TAKEN: 1000ML: DOSE CONCENTRATION: 4MG/ML?DATE OF MOST RECENT DOSE OF OB
     Route: 042
     Dates: start: 20131218
  3. VINCRISTINE [Suspect]
     Active Substance: VINCRISTINE
     Indication: DIFFUSE LARGE B-CELL LYMPHOMA
     Dosage: DOSE OF LAST VINCRISTINE TAKEN: 1.84 MG?DATE OF MOST RECENT DOSE OF VINCRISTINE PRIOR TO SAE: 30/JAN
     Route: 042
     Dates: start: 20131219
  4. PREDNISONE. [Suspect]
     Active Substance: PREDNISONE
     Indication: DIFFUSE LARGE B-CELL LYMPHOMA
     Dosage: DOSE OF LAST PREDNISONE TAKEN: 100 MG?DATE OF MOST RECENT DOSE OF PREDNISONE PRIOR TO SAE: 20/FEB/20
     Route: 048
     Dates: start: 20131218
  5. DOXORUBICIN [Suspect]
     Active Substance: DOXORUBICIN
     Indication: DIFFUSE LARGE B-CELL LYMPHOMA
     Dosage: DOSE OF LAST DOXORUBICIN TAKEN: 65.83 MG?DATE OF MOST RECENT DOSE OF DOXORUBICIN PRIOR TO SAE: 30/JA
     Route: 042
     Dates: start: 20131219

REACTIONS (1)
  - Angioimmunoblastic T-cell lymphoma [Not Recovered/Not Resolved]

NARRATIVE: CASE EVENT DATE: 20170322
